FAERS Safety Report 7471125-1 (Version None)
Quarter: 2011Q2

REPORT INFORMATION
  Report Type: 
  Country: None (occurrence: None)
  Receive Date: 20110510
  Receipt Date: 20110504
  Transmission Date: 20111010
  Serious: Yes (Other)
  Sender: FDA-Public Use
  Company Number: US-B.I. PHARMACEUTICALS,INC./RIDGEFIELD-2011-BP-10404BP

PATIENT
  Age: 88 Year
  Sex: Female
  Weight: 73.03 kg

DRUGS (4)
  1. PRADAXA [Suspect]
     Indication: ATRIAL FIBRILLATION
     Dosage: 300 MG
     Route: 048
     Dates: start: 20110316, end: 20110407
  2. ATENOLOL [Concomitant]
     Dosage: 50 MG
  3. MULTAQ [Concomitant]
     Dosage: 400 MG
     Dates: start: 20100610
  4. LISINOPRIL AND HYDROCHLOROTHIAZIDE [Concomitant]

REACTIONS (3)
  - INTERNATIONAL NORMALISED RATIO [None]
  - DEEP VEIN THROMBOSIS [None]
  - ACTIVATED PARTIAL THROMBOPLASTIN TIME PROLONGED [None]
